FAERS Safety Report 15661793 (Version 2)
Quarter: 2019Q1

REPORT INFORMATION
  Report Type: Report from Study
  Country: US (occurrence: US)
  Receive Date: 20181127
  Receipt Date: 20190104
  Transmission Date: 20190417
  Serious: Yes (Other)
  Sender: FDA-Public Use
  Company Number: US-BAYER-2018-215805

PATIENT
  Age: 65 Year
  Sex: Male

DRUGS (3)
  1. STIVARGA [Suspect]
     Active Substance: REGORAFENIB
     Indication: COLORECTAL CANCER
     Dosage: 80 MG 21 DAYS ON/7 DAYS OFF
     Route: 048
     Dates: start: 20181127, end: 20181210
  2. STIVARGA [Suspect]
     Active Substance: REGORAFENIB
     Indication: COLORECTAL CANCER
     Dosage: DAILY DOSE 120 MG, 21 DAY ON/7DAY OFF
     Route: 048
     Dates: start: 20181108, end: 201811
  3. STIVARGA [Suspect]
     Active Substance: REGORAFENIB
     Indication: COLORECTAL CANCER
     Dosage: DAILY DOSE 80 MG, 21 DAY ON/7DAY OFF
     Route: 048
     Dates: start: 201811, end: 20181119

REACTIONS (10)
  - Aphasia [Recovering/Resolving]
  - Carcinoembryonic antigen increased [Not Recovered/Not Resolved]
  - Fall [Not Recovered/Not Resolved]
  - Musculoskeletal pain [Not Recovered/Not Resolved]
  - Muscular weakness [None]
  - Off label use [None]
  - Asthenia [Recovering/Resolving]
  - Loss of personal independence in daily activities [Recovered/Resolved]
  - Dyspnoea exertional [Not Recovered/Not Resolved]
  - Dysphonia [Recovering/Resolving]

NARRATIVE: CASE EVENT DATE: 201811
